FAERS Safety Report 7306162-0 (Version None)
Quarter: 2011Q1

REPORT INFORMATION
  Report Type: 
  Country: None (occurrence: None)
  Receive Date: 20110222
  Receipt Date: 20110222
  Transmission Date: 20110831
  Serious: Yes (Other)
  Sender: FDA-Public Use
  Company Number: US-ABBOTT-11P-163-0705247-00

PATIENT
  Age: 26 Year
  Sex: Female

DRUGS (5)
  1. TRUVADA [Suspect]
     Indication: ANTIRETROVIRAL THERAPY
     Dosage: 1 TABLET/CAPSULE DAILY
     Route: 048
     Dates: start: 20070701, end: 20101014
  2. COMBIVIR [Suspect]
     Indication: ANTIRETROVIRAL THERAPY
     Dosage: 2 TABLETS/CAPSULES DAILY
     Route: 048
     Dates: start: 20101015
  3. NORVIR [Suspect]
     Indication: ANTIRETROVIRAL THERAPY
     Route: 048
     Dates: start: 20070701, end: 20101111
  4. KALETRA [Suspect]
     Indication: ANTIRETROVIRAL THERAPY
     Dosage: 4 TABLETS/CAPSULES DAILY
     Route: 048
     Dates: start: 20101112
  5. REYATAZ [Suspect]
     Indication: ANTIRETROVIRAL THERAPY
     Route: 048
     Dates: start: 20070701, end: 20101111

REACTIONS (2)
  - PREMATURE RUPTURE OF MEMBRANES [None]
  - ABORTION SPONTANEOUS [None]
